FAERS Safety Report 21900572 (Version 2)
Quarter: 2023Q1

REPORT INFORMATION
  Report Type: Spontaneous
  Country: CA (occurrence: CA)
  Receive Date: 20230123
  Receipt Date: 20230201
  Transmission Date: 20230418
  Serious: No
  Sender: FDA-Public Use
  Company Number: CA-MALLINCKRODT-T202300457

PATIENT
  Age: 80 Year
  Sex: Female

DRUGS (1)
  1. INOMAX [Suspect]
     Active Substance: NITRIC OXIDE
     Indication: Right ventricular failure
     Dosage: 20 PPM (INHALATION)
     Route: 055
     Dates: start: 20230108

REACTIONS (3)
  - Oxygen saturation decreased [Unknown]
  - Product use issue [Unknown]
  - Product use in unapproved indication [Unknown]

NARRATIVE: CASE EVENT DATE: 20230108
